FAERS Safety Report 5300616-4 (Version None)
Quarter: 2007Q2

REPORT INFORMATION
  Report Type: 
  Country: None (occurrence: None)
  Receive Date: 20070418
  Receipt Date: 20070412
  Transmission Date: 20071010
  Serious: Yes (Death)
  Sender: FDA-Public Use
  Company Number: RO-GENENTECH-215306

PATIENT
  Sex: Male
  Weight: 66 kg

DRUGS (16)
  1. RITUXIMAB [Suspect]
     Indication: CHRONIC LYMPHOCYTIC LEUKAEMIA
     Dosage: 375 MG/M2, Q4W
     Route: 042
     Dates: start: 20050316, end: 20050608
  2. FLUDARABINE [Suspect]
     Indication: CHRONIC LYMPHOCYTIC LEUKAEMIA
     Dosage: 25 MG/M2, Q4W
     Route: 042
     Dates: start: 20050317, end: 20050608
  3. CYCLOPHOSPHAMIDE [Suspect]
     Indication: CHRONIC LYMPHOCYTIC LEUKAEMIA
     Dosage: 250 MG/M2, Q4W
     Route: 042
     Dates: start: 20050317, end: 20050608
  4. CEFOPERAZONE SODIUM [Concomitant]
     Indication: PNEUMONIA
     Dosage: 4 G, QD
     Dates: start: 20050608, end: 20050612
  5. AMIKACIN [Concomitant]
     Indication: PNEUMONIA
     Dosage: 1 G, QD
     Dates: start: 20050608, end: 20050612
  6. METAMIZOLE [Concomitant]
     Indication: PNEUMONIA
     Dosage: 2 G, UNK
     Dates: start: 20050608, end: 20050612
  7. ACETYLCYSTEINE [Concomitant]
     Indication: PNEUMONIA
     Dosage: 600 MG, UNK
     Dates: start: 20050608, end: 20050612
  8. AMINOPHYLLINE [Concomitant]
     Indication: PNEUMONIA
     Dosage: 480 MG, UNK
     Dates: start: 20050608, end: 20050612
  9. DICLOFENAC [Concomitant]
     Indication: PNEUMONIA
     Dosage: 300 MG, UNK
     Dates: start: 20050608, end: 20050612
  10. POTASSIUM CHLORIDE [Concomitant]
     Indication: PNEUMONIA
     Dosage: 20 ML, UNK
     Dates: start: 20050611, end: 20050612
  11. TPN [Concomitant]
     Indication: DIARRHOEA
     Dates: start: 20050611, end: 20050612
  12. NACL 0.9 IV SOLUTION [Concomitant]
     Indication: DIARRHOEA
     Dosage: 1500 ML, UNK
     Dates: start: 20050611, end: 20050611
  13. NACL 0.9 IV SOLUTION [Concomitant]
     Dosage: 1500 ML, UNK
     Dates: start: 20050612, end: 20050612
  14. 5% GLUCOSE SOLUTION [Concomitant]
     Indication: DRUG USE FOR UNKNOWN INDICATION
     Dosage: 500 ML, UNK
     Dates: start: 20050612, end: 20050612
  15. AMIODARONE HCL [Concomitant]
     Indication: ATRIAL FIBRILLATION
     Dosage: 300 UNK, UNK
  16. FILGRASTIM [Concomitant]
     Indication: NEUTROPENIA
     Dosage: 150 MG, UNK

REACTIONS (11)
  - AORTIC CALCIFICATION [None]
  - ARTERIOSCLEROSIS [None]
  - ATRIAL FIBRILLATION [None]
  - BLOOD CREATININE INCREASED [None]
  - CARDIAC ARREST [None]
  - CARDIOMEGALY [None]
  - LYMPHADENOPATHY [None]
  - MYOCARDIAL FIBROSIS [None]
  - SEPTIC SHOCK [None]
  - VENTRICULAR HYPERTROPHY [None]
  - WHITE BLOOD CELL COUNT DECREASED [None]
